FAERS Safety Report 4337065-1 (Version None)
Quarter: 2004Q1

REPORT INFORMATION
  Report Type: 
  Country: None (occurrence: None)
  Receive Date: 20040329
  Receipt Date: 20031126
  Transmission Date: 20041129
  Serious: No
  Sender: FDA-Public Use
  Company Number: USA031253541

PATIENT
  Age: 49 Year
  Sex: Male

DRUGS (6)
  1. STRATTERA [Suspect]
     Dosage: 40 MG/DAY
     Dates: start: 20031117
  2. PRILOSEC [Concomitant]
  3. ATENOLOL [Concomitant]
  4. SINGULAIR [Concomitant]
  5. ALBUTEROL [Concomitant]
  6. ZOLPIDEM TARTRATE [Concomitant]

REACTIONS (5)
  - DYSURIA [None]
  - MUSCLE CRAMP [None]
  - NAUSEA [None]
  - TESTICULAR SWELLING [None]
  - URINARY HESITATION [None]
